FAERS Safety Report 25872174 (Version 1)
Quarter: 2025Q4

REPORT INFORMATION
  Report Type: Spontaneous
  Country: US (occurrence: US)
  Receive Date: 20251002
  Receipt Date: 20251002
  Transmission Date: 20260117
  Serious: No
  Sender: GC Biopharma
  Company Number: US-GC BIOPHARMA-US-2025-GCBP-00011

PATIENT
  Age: 41 Year
  Sex: Female
  Weight: 126.55 kg

DRUGS (2)
  1. ALYGLO [Suspect]
     Active Substance: HUMAN IMMUNOGLOBULIN G-STWK
     Indication: Immunodeficiency
     Dosage: 50 GRAM
     Route: 042
     Dates: start: 20250521, end: 20250521
  2. ALYGLO [Suspect]
     Active Substance: HUMAN IMMUNOGLOBULIN G-STWK
     Dosage: 30 GRAM
     Route: 042
     Dates: start: 20250617, end: 20250617

REACTIONS (1)
  - Headache [Not Recovered/Not Resolved]

NARRATIVE: CASE EVENT DATE: 20250521
